FAERS Safety Report 12944852 (Version 3)
Quarter: 2016Q4

REPORT INFORMATION
  Report Type: Spontaneous
  Country: AU (occurrence: AU)
  Receive Date: 20161115
  Receipt Date: 20161216
  Transmission Date: 20170207
  Serious: Yes (Other)
  Sender: FDA-Public Use
  Company Number: AU-BAUSCH-BL-2016-025515

PATIENT
  Age: 8 Month
  Sex: Male

DRUGS (1)
  1. SOLONE [Suspect]
     Active Substance: PREDNISOLONE
     Indication: PRODUCT USED FOR UNKNOWN INDICATION
     Route: 063
     Dates: start: 2016

REACTIONS (8)
  - Hair texture abnormal [Unknown]
  - Joint crepitation [Unknown]
  - Mood altered [Unknown]
  - Motor developmental delay [Unknown]
  - Bone disorder [Unknown]
  - Laryngomalacia [Unknown]
  - Enamel anomaly [Unknown]
  - Alopecia [Unknown]

NARRATIVE: CASE EVENT DATE: 2016
